FAERS Safety Report 20708756 (Version 1)
Quarter: 2022Q2

REPORT INFORMATION
  Report Type: Spontaneous
  Country: CA (occurrence: CA)
  Receive Date: 20220414
  Receipt Date: 20220414
  Transmission Date: 20220721
  Serious: Yes (Other)
  Sender: FDA-Public Use
  Company Number: CA-ROCHE-3066814

PATIENT
  Age: 40 Year
  Sex: Female

DRUGS (19)
  1. DIAZEPAM [Suspect]
     Active Substance: DIAZEPAM
     Indication: Product used for unknown indication
     Route: 065
  2. ACLIDINIUM BROMIDE [Suspect]
     Active Substance: ACLIDINIUM BROMIDE
     Indication: Product used for unknown indication
     Route: 055
  3. ALVESCO [Suspect]
     Active Substance: CICLESONIDE
     Indication: Product used for unknown indication
     Route: 048
  4. ARNUITY ELLIPTA [Suspect]
     Active Substance: FLUTICASONE FUROATE
     Indication: Product used for unknown indication
     Route: 065
  5. ATROVENT [Suspect]
     Active Substance: IPRATROPIUM BROMIDE
     Indication: Product used for unknown indication
     Route: 065
  6. FORMOTEROL FUMARATE [Suspect]
     Active Substance: FORMOTEROL FUMARATE
     Indication: Product used for unknown indication
     Route: 065
  7. FORMOTEROL\MOMETASONE [Suspect]
     Active Substance: FORMOTEROL\MOMETASONE
     Indication: Product used for unknown indication
     Route: 065
  8. INDACATEROL MALEATE [Suspect]
     Active Substance: INDACATEROL MALEATE
     Indication: Product used for unknown indication
     Route: 065
  9. NOVORAPID [Suspect]
     Active Substance: INSULIN ASPART
     Indication: Product used for unknown indication
     Route: 058
  10. PULMICORT TURBUHALER [Suspect]
     Active Substance: BUDESONIDE
     Indication: Product used for unknown indication
     Route: 055
  11. ALBUTEROL [Suspect]
     Active Substance: ALBUTEROL
     Indication: Product used for unknown indication
     Route: 065
  12. SINGULAIR [Suspect]
     Active Substance: MONTELUKAST SODIUM
     Indication: Product used for unknown indication
     Route: 065
  13. TIOTROPIUM BROMIDE [Suspect]
     Active Substance: TIOTROPIUM BROMIDE
     Indication: Product used for unknown indication
     Route: 065
  14. TRAZODONE [Suspect]
     Active Substance: TRAZODONE HYDROCHLORIDE
     Indication: Product used for unknown indication
     Route: 065
  15. ACETIAMINE HYDROCHLORIDE;ACETYLSALICYLIC ACID [Concomitant]
     Indication: Product used for unknown indication
     Route: 065
  16. CETIRIZINE [Concomitant]
     Active Substance: CETIRIZINE HYDROCHLORIDE
     Indication: Product used for unknown indication
     Route: 065
  17. EZETIMIBE [Concomitant]
     Active Substance: EZETIMIBE
     Indication: Product used for unknown indication
     Route: 065
  18. PANTOPRAZOLE MAGNESIUM [Concomitant]
     Active Substance: PANTOPRAZOLE MAGNESIUM
     Indication: Product used for unknown indication
     Route: 065
  19. ROSUVASTATIN CALCIUM [Concomitant]
     Active Substance: ROSUVASTATIN CALCIUM
     Indication: Product used for unknown indication
     Route: 065

REACTIONS (26)
  - Abscess [Unknown]
  - Asthma [Unknown]
  - Blood test abnormal [Unknown]
  - Condition aggravated [Unknown]
  - Coronary artery disease [Unknown]
  - Cough [Unknown]
  - Depression [Unknown]
  - Disability [Unknown]
  - Drug ineffective [Unknown]
  - Dyslipidaemia [Unknown]
  - Dyspnoea [Unknown]
  - Eczema [Unknown]
  - Gastrooesophageal reflux disease [Unknown]
  - Blood immunoglobulin E increased [Unknown]
  - Hypertension [Unknown]
  - Myocardial infarction [Unknown]
  - Obstructive airways disorder [Unknown]
  - Pneumonia [Unknown]
  - Polycystic ovaries [Unknown]
  - Pruritus [Unknown]
  - Restless legs syndrome [Unknown]
  - Restrictive pulmonary disease [Unknown]
  - Skin lesion [Unknown]
  - Sleep apnoea syndrome [Unknown]
  - Type 2 diabetes mellitus [Unknown]
  - Weight decreased [Unknown]
